FAERS Safety Report 24030212 (Version 3)
Quarter: 2025Q1

REPORT INFORMATION
  Report Type: Spontaneous
  Country: US (occurrence: US)
  Receive Date: 20240628
  Receipt Date: 20250320
  Transmission Date: 20250408
  Serious: No
  Sender: SANOFI AVENTIS
  Company Number: US-SA-SAC20230120000142

PATIENT
  Age: 56 Year
  Sex: Female

DRUGS (1)
  1. CERDELGA [Suspect]
     Active Substance: ELIGLUSTAT
     Indication: Gaucher^s disease
     Dosage: 84 MG, QD
     Route: 048
     Dates: start: 201908

REACTIONS (10)
  - Pain [Unknown]
  - Osteoporosis [Unknown]
  - Condition aggravated [Unknown]
  - Lower limb fracture [Unknown]
  - Rib fracture [Unknown]
  - Myalgia [Unknown]
  - Bone pain [Unknown]
  - Asthenia [Unknown]
  - Condition aggravated [Unknown]
  - Renal surgery [Unknown]
